FAERS Safety Report 5770676-5 (Version None)
Quarter: 2008Q2

REPORT INFORMATION
  Report Type: 
  Country: None (occurrence: None)
  Receive Date: 20080613
  Receipt Date: 20080508
  Transmission Date: 20081010
  Serious: No
  Sender: FDA-Public Use
  Company Number: US-ABBOTT-08P-163-0451184-00

PATIENT
  Sex: Female
  Weight: 70.37 kg

DRUGS (4)
  1. HUMIRA [Suspect]
     Indication: CROHN'S DISEASE
     Route: 058
     Dates: start: 20061001, end: 20071101
  2. HUMIRA [Suspect]
     Route: 058
     Dates: start: 20071101, end: 20080201
  3. HUMIRA [Suspect]
     Route: 058
     Dates: start: 20080201, end: 20080401
  4. CIPROFLOXACIN HCL [Concomitant]
     Indication: CROHN'S DISEASE
     Route: 048
     Dates: start: 20080401

REACTIONS (4)
  - DRUG INEFFECTIVE [None]
  - FATIGUE [None]
  - RASH [None]
  - SWELLING [None]
